FAERS Safety Report 4606265-5 (Version None)
Quarter: 2005Q2

REPORT INFORMATION
  Report Type: 
  Country: None (occurrence: None)
  Receive Date: 20050303
  Receipt Date: 20041213
  Transmission Date: 20051028
  Serious: No
  Sender: FDA-Public Use
  Company Number: 200421166BWH

PATIENT
  Sex: Female

DRUGS (1)
  1. LEVITRA [Suspect]
     Dosage: 40 MG, TOTAL DAILY, ORAL
     Route: 048

REACTIONS (5)
  - FLUSHING [None]
  - HEADACHE [None]
  - MEDICATION ERROR [None]
  - NASAL CONGESTION [None]
  - VISION BLURRED [None]
